FAERS Safety Report 7116167-0 (Version None)
Quarter: 2010Q4

REPORT INFORMATION
  Report Type: 
  Country: None (occurrence: None)
  Receive Date: 20101122
  Receipt Date: 20101110
  Transmission Date: 20110411
  Serious: Yes (Hospitalization, Other)
  Sender: FDA-Public Use
  Company Number: PHHO2010IT17138

PATIENT
  Sex: Male
  Weight: 59.8 kg

DRUGS (9)
  1. CERTICAN [Suspect]
     Indication: RENAL TRANSPLANT
     Dosage: 0.75 MG, BID
     Route: 048
     Dates: start: 20100313, end: 20100507
  2. BACTRIM DS [Suspect]
  3. NEORAL [Concomitant]
  4. STEROIDS NOS [Concomitant]
  5. LASIX [Concomitant]
  6. CARDURA [Concomitant]
  7. ARANESP [Concomitant]
  8. CITOFOLIN [Concomitant]
  9. FERROGRAD [Concomitant]

REACTIONS (3)
  - C-REACTIVE PROTEIN INCREASED [None]
  - PANCYTOPENIA [None]
  - PYREXIA [None]
